FAERS Safety Report 23192561 (Version 2)
Quarter: 2023Q4

REPORT INFORMATION
  Report Type: Spontaneous
  Country: FR (occurrence: FR)
  Receive Date: 20231116
  Receipt Date: 20231124
  Transmission Date: 20240109
  Serious: Yes (Hospitalization)
  Sender: FDA-Public Use
  Company Number: FR-TEVA-2023-FR-2944585

PATIENT
  Age: 55 Year
  Sex: Male

DRUGS (7)
  1. VALGANCICLOVIR [Suspect]
     Active Substance: VALGANCICLOVIR
     Indication: Cytomegalovirus infection
     Route: 065
  2. VALGANCICLOVIR [Suspect]
     Active Substance: VALGANCICLOVIR
     Indication: Prophylaxis
  3. FOSCARNET [Suspect]
     Active Substance: FOSCARNET
     Indication: Cytomegalovirus infection
     Dosage: 100 MG/KG DAILY; ONCE A DAY
     Route: 042
  4. GANCICLOVIR [Suspect]
     Active Substance: GANCICLOVIR
     Indication: Cytomegalovirus infection
     Route: 065
  5. THYMOCYTE IMMUNE GLOBULIN NOS [Concomitant]
     Active Substance: THYMOCYTE IMMUNE GLOBULIN NOS
     Indication: Prophylaxis against transplant rejection
     Route: 065
  6. AZATHIOPRINE [Concomitant]
     Active Substance: AZATHIOPRINE
     Indication: Prophylaxis against transplant rejection
     Route: 065
  7. TACROLIMUS [Concomitant]
     Active Substance: TACROLIMUS
     Indication: Prophylaxis against transplant rejection
     Route: 065

REACTIONS (5)
  - Glomerulonephritis rapidly progressive [Unknown]
  - Nephrolithiasis [Unknown]
  - Acute kidney injury [Unknown]
  - Drug resistance [Unknown]
  - Drug ineffective [Unknown]
